FAERS Safety Report 9899428 (Version 4)
Quarter: 2014Q3

REPORT INFORMATION
  Report Type: Spontaneous
  Country: US (occurrence: US)
  Receive Date: 20140214
  Receipt Date: 20140728
  Transmission Date: 20150326
  Serious: Yes (Hospitalization, Other)
  Sender: FDA-Public Use
  Company Number: US-GILEAD-2014-0094519

PATIENT
  Sex: Female

DRUGS (2)
  1. LETAIRIS [Suspect]
     Active Substance: AMBRISENTAN
     Indication: SARCOIDOSIS
  2. LETAIRIS [Suspect]
     Active Substance: AMBRISENTAN
     Indication: PULMONARY HYPERTENSION
     Dosage: UNK
     Route: 065

REACTIONS (9)
  - Respiratory failure [Unknown]
  - Chest discomfort [Unknown]
  - Cardiac failure [Unknown]
  - Fluid retention [Unknown]
  - Gastroenteritis [Unknown]
  - Oedema peripheral [Unknown]
  - Malaise [Unknown]
  - Asthenia [Unknown]
  - Pulmonary hypertension [Unknown]
